FAERS Safety Report 9425583 (Version 1)
Quarter: 2013Q3

REPORT INFORMATION
  Report Type: Spontaneous
  Country: US (occurrence: US)
  Receive Date: 20130729
  Receipt Date: 20130729
  Transmission Date: 20140515
  Serious: No
  Sender: FDA-Public Use
  Company Number: US-MYLANLABS-2013S1004846

PATIENT
  Age: 69 Year
  Sex: Female
  Weight: 46.27 kg

DRUGS (2)
  1. LEVOTHYROXINE SODIUM TABLETS, USP [Suspect]
     Indication: HYPOTHYROIDISM
     Route: 048
     Dates: start: 20121120, end: 20130314
  2. LEVOTHYROXINE [Concomitant]

REACTIONS (2)
  - Muscle atrophy [Not Recovered/Not Resolved]
  - Feeling cold [Not Recovered/Not Resolved]
